FAERS Safety Report 8336326-9 (Version None)
Quarter: 2012Q2

REPORT INFORMATION
  Report Type: 
  Country: None (occurrence: None)
  Receive Date: 20120501
  Receipt Date: 20120419
  Transmission Date: 20120825
  Serious: Yes (Hospitalization)
  Sender: FDA-Public Use
  Company Number: GB-DEXPHARM-20120229

PATIENT
  Age: 73 Year
  Sex: Female

DRUGS (2)
  1. NAPROXEN [Suspect]
  2. OMEPRAZOLE [Suspect]
     Indication: PROPHYLAXIS

REACTIONS (2)
  - CUTANEOUS LUPUS ERYTHEMATOSUS [None]
  - CONDITION AGGRAVATED [None]
